FAERS Safety Report 5900101-2 (Version None)
Quarter: 2008Q3

REPORT INFORMATION
  Report Type: 
  Country: None (occurrence: None)
  Receive Date: 20080924
  Receipt Date: 20080917
  Transmission Date: 20090109
  Serious: Yes (Death, Hospitalization)
  Sender: FDA-Public Use
  Company Number: 2008SP019251

PATIENT
  Age: 70 Year
  Sex: Female

DRUGS (1)
  1. TEMODAL [Suspect]
     Indication: GLIOBLASTOMA
     Dosage: 75 GM/M2; QD; PO
     Route: 048

REACTIONS (4)
  - ANAEMIA [None]
  - HAEMATOTOXICITY [None]
  - PULMONARY EMBOLISM [None]
  - THROMBOCYTOPENIA [None]
